FAERS Safety Report 8004465-8 (Version None)
Quarter: 2011Q4

REPORT INFORMATION
  Report Type: 
  Country: None (occurrence: None)
  Receive Date: 20111221
  Receipt Date: 20111221
  Transmission Date: 20120403
  Serious: Yes (Disabling)
  Sender: FDA-Public Use
  Company Number: None

PATIENT
  Sex: Male

DRUGS (2)
  1. PEGASYS [Suspect]
     Indication: HEPATITIS C
     Dosage: 180 MCG/0.5 ML Q WEEK INJ
     Dates: start: 20110608, end: 20111110
  2. RIBAVIRIN [Suspect]
     Dosage: 600 MG BID PO
     Route: 048

REACTIONS (2)
  - OPTIC NEURITIS [None]
  - IMMUNE SYSTEM DISORDER [None]
